FAERS Safety Report 6371421-5 (Version None)
Quarter: 2009Q3

REPORT INFORMATION
  Report Type: 
  Country: None (occurrence: None)
  Receive Date: 20090923
  Receipt Date: 20080229
  Transmission Date: 20100115
  Serious: Yes (Hospitalization, Other)
  Sender: FDA-Public Use
  Company Number: US-ASTRAZENECA-2007UW14904

PATIENT
  Age: 5543 Day
  Sex: Female
  Weight: 63.5 kg

DRUGS (13)
  1. SEROQUEL [Suspect]
     Indication: DEPRESSION
     Route: 048
     Dates: start: 20050701, end: 20050715
  2. SEROQUEL [Suspect]
     Indication: AFFECTIVE DISORDER
     Route: 048
     Dates: start: 20050701, end: 20050715
  3. SEROQUEL [Suspect]
     Indication: MOOD SWINGS
     Route: 048
     Dates: start: 20050701, end: 20050715
  4. SEROQUEL [Suspect]
     Dosage: 100 - 200 MG DAILY
     Route: 048
     Dates: start: 20050801
  5. SEROQUEL [Suspect]
     Dosage: 100 - 200 MG DAILY
     Route: 048
     Dates: start: 20050801
  6. SEROQUEL [Suspect]
     Dosage: 100 - 200 MG DAILY
     Route: 048
     Dates: start: 20050801
  7. MORPHINE SULFATE INJ [Concomitant]
     Indication: PAIN
     Dosage: 16 - 64 MG DAILY
     Route: 042
     Dates: start: 20050819
  8. ZOFRAN [Concomitant]
     Dosage: 2 ML EVERY 4 HOURS
     Route: 042
     Dates: start: 20050817
  9. LORTAB [Concomitant]
     Dosage: STRENGTH - 7.5 / 500 MG, DOSE - 7.5 - 15 MG AS REQUIRED
     Route: 048
     Dates: start: 20050819
  10. ATIVAN [Concomitant]
     Route: 042
     Dates: start: 20050418
  11. ZOLOFT [Concomitant]
     Dates: start: 20050816
  12. MIDRIN [Concomitant]
     Indication: MIGRAINE
     Dates: start: 20050816
  13. ALBUTEROL [Concomitant]
     Dates: start: 20050816

REACTIONS (2)
  - PANCREATITIS [None]
  - PANCREATITIS ACUTE [None]
